FAERS Safety Report 9311136 (Version 2)
Quarter: 2013Q2

REPORT INFORMATION
  Report Type: Spontaneous
  Country: US (occurrence: US)
  Receive Date: 20130528
  Receipt Date: 20130603
  Transmission Date: 20140414
  Serious: No
  Sender: FDA-Public Use
  Company Number: US-PFIZER INC-2013160258

PATIENT
  Age: 59 Year
  Sex: Male
  Weight: 95.24 kg

DRUGS (4)
  1. PRISTIQ [Suspect]
     Indication: DEPRESSION
     Dosage: 100 MG, 1X/DAY
     Route: 048
     Dates: start: 201202
  2. PRISTIQ [Suspect]
     Dosage: 100 MG, 1X/DAY
     Route: 048
     Dates: start: 2012
  3. CLONAZEPAM [Concomitant]
     Dosage: UNK, 1X/DAY
  4. ZOLPIDEM [Concomitant]
     Dosage: UNK, AS NEEDED

REACTIONS (7)
  - Drug withdrawal syndrome [Unknown]
  - Hearing impaired [Unknown]
  - Tachyphrenia [Unknown]
  - Feeling abnormal [Unknown]
  - Feeling jittery [Unknown]
  - Medication residue present [Unknown]
  - Product solubility abnormal [Unknown]
